FAERS Safety Report 4996859-X (Version None)
Quarter: 2006Q2

REPORT INFORMATION
  Report Type: 
  Country: None (occurrence: None)
  Receive Date: 20060509
  Receipt Date: 20060424
  Transmission Date: 20061013
  Serious: Yes (Other)
  Sender: FDA-Public Use
  Company Number: PHEH2006US05406

PATIENT
  Age: 53 Year
  Sex: Male
  Weight: 72.108 kg

DRUGS (1)
  1. ZOMETA [Suspect]
     Indication: MULTIPLE MYELOMA
     Dosage: 4MG MONTHLY
     Route: 042
     Dates: end: 20060420

REACTIONS (9)
  - ACTINOMYCOSIS [None]
  - GINGIVAL INFECTION [None]
  - GINGIVAL SWELLING [None]
  - GINGIVITIS [None]
  - ORAL SOFT TISSUE DISORDER [None]
  - OSTEOMYELITIS [None]
  - OSTEONECROSIS [None]
  - PAIN [None]
  - TOOTH EXTRACTION [None]
